FAERS Safety Report 9816418 (Version 3)
Quarter: 2014Q1

REPORT INFORMATION
  Report Type: Spontaneous
  Country: GB (occurrence: GB)
  Receive Date: 20140114
  Receipt Date: 20140310
  Transmission Date: 20141002
  Serious: Yes (Other)
  Sender: FDA-Public Use
  Company Number: GB-WATSON-2013-24410

PATIENT
  Age: 43 Year
  Sex: Male

DRUGS (12)
  1. AMISULPRIDE (UNKNOWN) [Suspect]
     Indication: PRODUCT USED FOR UNKNOWN INDICATION
     Dosage: UNK
     Route: 065
  2. CITALOPRAM (UNKNOWN) [Suspect]
     Indication: PRODUCT USED FOR UNKNOWN INDICATION
     Dosage: UNK
     Route: 065
  3. CLOZARIL [Suspect]
     Indication: SCHIZOPHRENIA
     Dosage: UNK
     Route: 048
     Dates: start: 19920220
  4. CLOZARIL [Suspect]
     Dosage: 500 MG, DAILY
     Route: 048
     Dates: start: 1995
  5. CLOZARIL [Suspect]
     Dosage: 600 MG, UNK
     Route: 048
  6. CLOZARIL [Suspect]
     Dosage: UNK
     Route: 048
  7. AMLODIPINE [Concomitant]
     Indication: HYPERTENSION
     Dosage: 10 MG, DAILY
     Route: 048
     Dates: start: 20120810
  8. ARIPIPRAZOLE [Concomitant]
     Indication: PRODUCT USED FOR UNKNOWN INDICATION
     Dosage: UNK
     Route: 065
  9. BENDROFLUMETHIAZIDE [Concomitant]
     Indication: HYPERTENSION
     Dosage: 2.5 MG, DAILY
     Route: 048
     Dates: start: 20120810
  10. DEPAKOTE [Concomitant]
     Indication: SCHIZOPHRENIA
     Dosage: 750 MG, DAILY
     Route: 048
     Dates: start: 20120810
  11. PROMETHAZINE [Concomitant]
     Indication: AGITATION
     Dosage: 100 MG, DAILY
     Route: 048
     Dates: start: 20131217
  12. RISPERIDONE [Concomitant]
     Indication: SCHIZOPHRENIA
     Dosage: 5 MG, DAILY
     Route: 048
     Dates: start: 20131209

REACTIONS (2)
  - Electrocardiogram QT prolonged [Recovered/Resolved]
  - Electrocardiogram QT shortened [Recovered/Resolved]
